FAERS Safety Report 5621668-8 (Version None)
Quarter: 2008Q1

REPORT INFORMATION
  Report Type: 
  Country: None (occurrence: None)
  Receive Date: 20080211
  Receipt Date: 20080128
  Transmission Date: 20080703
  Serious: Yes (Hospitalization)
  Sender: FDA-Public Use
  Company Number: US-AMGEN-QUU259804

PATIENT
  Sex: Male

DRUGS (1)
  1. ENBREL [Suspect]
     Indication: PSORIASIS
     Route: 058
     Dates: start: 20040101

REACTIONS (4)
  - ANGIOEDEMA [None]
  - IMMUNE SYSTEM DISORDER [None]
  - SKIN REACTION [None]
  - WHITE BLOOD CELL COUNT INCREASED [None]
